FAERS Safety Report 11404403 (Version 1)
Quarter: 2015Q3

REPORT INFORMATION
  Report Type: Spontaneous
  Country: US (occurrence: US)
  Receive Date: 20150821
  Receipt Date: 20150821
  Transmission Date: 20151125
  Serious: No
  Sender: FDA-Public Use
  Company Number: ALCN2015US005195

PATIENT
  Age: 90 Year
  Sex: Female

DRUGS (1)
  1. SYSTANE GEL DROPS ANYTIME PROTECTION [Suspect]
     Active Substance: POLYETHYLENE GLYCOL 400
     Indication: DRY EYE
     Dosage: 1 GTT, 2-3 X A DAY
     Route: 047
     Dates: start: 20150816, end: 20150818

REACTIONS (2)
  - Condition aggravated [Unknown]
  - Lacrimation increased [Unknown]

NARRATIVE: CASE EVENT DATE: 20150816
